FAERS Safety Report 14681741 (Version 3)
Quarter: 2018Q2

REPORT INFORMATION
  Report Type: Spontaneous
  Country: US (occurrence: US)
  Receive Date: 20180326
  Receipt Date: 20180406
  Transmission Date: 20180711
  Serious: No
  Sender: FDA-Public Use
  Company Number: US-VIFOR (INTERNATIONAL) INC.-VIT-2018-02705

PATIENT
  Age: 73 Year
  Sex: Female

DRUGS (19)
  1. PARACETAMOL [Concomitant]
     Active Substance: ACETAMINOPHEN
  2. ALLERGY RELIEF [Concomitant]
  3. FLUDROCORTISONE ACETATE. [Concomitant]
     Active Substance: FLUDROCORTISONE ACETATE
  4. GLUCOSAMINE HYDROCHLORIDE [Concomitant]
     Active Substance: GLUCOSAMINE HYDROCHLORIDE
  5. MECLOZINE HYDROCHLORIDE [Concomitant]
     Active Substance: MECLOZINE DIHYDROCHLORIDE
  6. COLECALCIFEROL [Concomitant]
     Active Substance: CHOLECALCIFEROL
  7. DOCUSATE CALCIUM. [Concomitant]
     Active Substance: DOCUSATE CALCIUM
  8. MAGNESIUM CITRATE. [Concomitant]
     Active Substance: MAGNESIUM CITRATE
  9. METAMUCIL [Concomitant]
     Active Substance: PLANTAGO SEED
  10. ALENDRONATE SODIUM. [Concomitant]
     Active Substance: ALENDRONATE SODIUM
  11. VITAMIN B COMPLEX [Concomitant]
     Active Substance: CYANOCOBALAMIN\DEXPANTHENOL\NIACINAMIDE\PYRIDOXINE HYDROCHLORIDE\RIBOFLAVIN 5^-PHOSPHATE SODIUM\THIAMINE HYDROCHLORIDE\VITAMIN B COMPLEX
  12. FLAXSEED [Concomitant]
     Active Substance: FLAX SEED
  13. CLEARLAX [Concomitant]
     Active Substance: POLYETHYLENE GLYCOL 3350
  14. LINZESS [Concomitant]
     Active Substance: LINACLOTIDE
  15. LORATADINE. [Concomitant]
     Active Substance: LORATADINE
  16. STOOL SOFTENER (DOCUSATE) [Concomitant]
     Active Substance: DOCUSATE
  17. ERGOCALCIFEROL~~ASCORBIC ACID~~TOCOPHEROL~~FOLIC ACID~~RETINOL~~VITAMIN B NOS [Concomitant]
  18. FUROSEMIDE. [Concomitant]
     Active Substance: FUROSEMIDE
  19. VELTASSA [Suspect]
     Active Substance: PATIROMER
     Indication: HYPERKALAEMIA
     Route: 048
     Dates: start: 20160129

REACTIONS (1)
  - Tremor [Unknown]

NARRATIVE: CASE EVENT DATE: 201801
